FAERS Safety Report 9957910 (Version 1)
Quarter: 2014Q1

REPORT INFORMATION
  Report Type: Report from Study
  Country: US (occurrence: US)
  Receive Date: 20140304
  Receipt Date: 20140304
  Transmission Date: 20141002
  Serious: No
  Sender: FDA-Public Use
  Company Number: US-ABBVIE-13P-163-1095004-00

PATIENT
  Age: 40 Year
  Sex: Female

DRUGS (6)
  1. HUMIRA [Suspect]
     Indication: RHEUMATOID ARTHRITIS
     Route: 058
     Dates: start: 201208
  2. ARAVA [Concomitant]
     Indication: PRODUCT USED FOR UNKNOWN INDICATION
  3. PREDNISONE [Concomitant]
     Indication: RHEUMATOID ARTHRITIS
  4. FOLIC ACID [Concomitant]
     Indication: VITAMIN SUPPLEMENTATION
  5. IBUPROFEN [Concomitant]
     Indication: SWELLING
  6. VICODIN [Concomitant]
     Indication: PAIN
     Dosage: 5/500 MG 4 A DAY AS NEEDED

REACTIONS (4)
  - Decreased appetite [Unknown]
  - Sinusitis [Recovered/Resolved]
  - Polyp [Unknown]
  - Rheumatoid arthritis [Unknown]
